FAERS Safety Report 5540912-9 (Version None)
Quarter: 2007Q4

REPORT INFORMATION
  Report Type: 
  Country: None (occurrence: None)
  Receive Date: 20071209
  Receipt Date: 20070301
  Transmission Date: 20080405
  Serious: No
  Sender: FDA-Public Use
  Company Number: US-AMGEN-KDL203640

PATIENT
  Sex: Female

DRUGS (6)
  1. ENBREL [Suspect]
     Indication: PSORIASIS
     Route: 058
     Dates: start: 20061211
  2. ALLEGRA [Concomitant]
  3. NEXIUM [Concomitant]
  4. PEPCID [Concomitant]
  5. DOVONEX [Concomitant]
  6. CLOBETASOL PROPIONATE [Concomitant]

REACTIONS (2)
  - JOINT SWELLING [None]
  - OEDEMA PERIPHERAL [None]
